FAERS Safety Report 14109892 (Version 1)
Quarter: 2017Q4

REPORT INFORMATION
  Report Type: Spontaneous
  Country: US (occurrence: US)
  Receive Date: 20171020
  Receipt Date: 20171020
  Transmission Date: 20180321
  Serious: Yes (Hospitalization)
  Sender: FDA-Public Use
  Company Number: US-TEVA-719571USA

PATIENT
  Sex: Female

DRUGS (1)
  1. MICONAZOLE. [Suspect]
     Active Substance: MICONAZOLE
     Route: 065

REACTIONS (1)
  - Thermal burn [Unknown]
